FAERS Safety Report 4460499-1 (Version None)
Quarter: 2004Q3

REPORT INFORMATION
  Report Type: 
  Country: None (occurrence: None)
  Receive Date: 20040923
  Receipt Date: 20040923
  Transmission Date: 20050211
  Serious: No
  Sender: FDA-Public Use
  Company Number: None

PATIENT
  Age: 84 Year
  Sex: Male
  Weight: 73.0291 kg

DRUGS (10)
  1. NESIRITIDE  1.5MG/ 250ML [Suspect]
     Indication: CARDIAC FAILURE CONGESTIVE
     Dosage: 0.01MCG/KG/M   INTRAVENOUS
     Route: 042
     Dates: start: 20040219, end: 20040221
  2. ASPIRIN [Concomitant]
  3. PREVACID [Concomitant]
  4. NITRO-BID [Concomitant]
  5. LOPRESSOR [Concomitant]
  6. VASOTEC [Concomitant]
  7. ZOCOR [Concomitant]
  8. FLAGYL [Concomitant]
  9. XANAX [Concomitant]
  10. PLAVIX [Concomitant]

REACTIONS (2)
  - HYPOTENSION [None]
  - INFUSION RELATED REACTION [None]
